FAERS Safety Report 25139735 (Version 1)
Quarter: 2025Q1

REPORT INFORMATION
  Report Type: Spontaneous
  Country: US (occurrence: US)
  Receive Date: 20250331
  Receipt Date: 20250331
  Transmission Date: 20250409
  Serious: No
  Sender: AMGEN
  Company Number: US-AMGEN-USASP2025059405

PATIENT
  Age: 35 Year
  Sex: Male
  Weight: 139.3 kg

DRUGS (1)
  1. MVASI [Suspect]
     Active Substance: BEVACIZUMAB-AWWB
     Indication: Rectal cancer
     Route: 065

REACTIONS (2)
  - Refusal of treatment by patient [Unknown]
  - Off label use [Unknown]

NARRATIVE: CASE EVENT DATE: 20250222
